FAERS Safety Report 6587888-3 (Version None)
Quarter: 2010Q1

REPORT INFORMATION
  Report Type: 
  Country: None (occurrence: None)
  Receive Date: 20100218
  Receipt Date: 20100210
  Transmission Date: 20100710
  Serious: Yes (Hospitalization)
  Sender: FDA-Public Use
  Company Number: JP-BAYER-200912611BYL

PATIENT
  Age: 72 Year
  Sex: Male
  Weight: 58 kg

DRUGS (11)
  1. NEXAVAR [Suspect]
     Indication: HEPATIC NEOPLASM MALIGNANT
     Dosage: UNIT DOSE: 200 MG
     Route: 048
     Dates: start: 20090707, end: 20090713
  2. OMEPRAZOLE [Concomitant]
     Route: 048
  3. FENTANYL-100 [Concomitant]
     Indication: PAIN
     Route: 062
     Dates: start: 20090710
  4. AMOXAPINE [Concomitant]
     Route: 048
     Dates: start: 20090812
  5. OXYCONTIN [Concomitant]
     Route: 048
     Dates: start: 20090703, end: 20090710
  6. OXYCONTIN [Concomitant]
     Route: 048
     Dates: start: 20090702, end: 20090703
  7. DUROTEP [Concomitant]
     Dosage: TOTAL DAILY DOSE: 2.1 MG
     Route: 062
     Dates: start: 20090710, end: 20090716
  8. DUROTEP [Concomitant]
     Dosage: TOTAL DAILY DOSE: 1.05 MG
     Route: 062
     Dates: start: 20090716, end: 20090828
  9. VOLTAREN [Concomitant]
     Route: 048
     Dates: start: 20090704, end: 20090707
  10. VOLTAREN [Concomitant]
     Route: 048
     Dates: start: 20090708, end: 20090714
  11. NOVAMIN [Concomitant]
     Route: 048
     Dates: start: 20090703, end: 20090707

REACTIONS (3)
  - GASTROINTESTINAL HAEMORRHAGE [None]
  - HEPATIC ENCEPHALOPATHY [None]
  - HYPERTENSION [None]
